FAERS Safety Report 7468758-5 (Version None)
Quarter: 2011Q2

REPORT INFORMATION
  Report Type: 
  Country: None (occurrence: None)
  Receive Date: 20110510
  Receipt Date: 20110429
  Transmission Date: 20111010
  Serious: No
  Sender: FDA-Public Use
  Company Number: US-BIOGENIDEC-2011BI016244

PATIENT
  Sex: Female

DRUGS (2)
  1. TYSABRI [Suspect]
     Indication: CROHN'S DISEASE
     Route: 042
     Dates: start: 20100825
  2. TYSABRI [Suspect]
     Route: 042
     Dates: start: 20081119, end: 20091116

REACTIONS (2)
  - PAIN IN EXTREMITY [None]
  - UPPER LIMB FRACTURE [None]
